FAERS Safety Report 5467894-2 (Version None)
Quarter: 2007Q3

REPORT INFORMATION
  Report Type: 
  Country: None (occurrence: None)
  Receive Date: 20070921
  Receipt Date: 20070913
  Transmission Date: 20080115
  Serious: Yes (Other)
  Sender: FDA-Public Use
  Company Number: THQ2007A00885

PATIENT
  Age: 54 Year
  Sex: Male

DRUGS (4)
  1. ACTOS [Suspect]
     Dosage: 30 MG
     Route: 048
  2. DIANBEN       (METFORMIN HYDROCHLORIDE) [Concomitant]
  3. GEMFIBROZILO                (GEMFIBROZIL) [Concomitant]
  4. SIMVASTATIN [Concomitant]

REACTIONS (2)
  - ARTHRALGIA [None]
  - BLOOD TRIGLYCERIDES INCREASED [None]
